FAERS Safety Report 9760236 (Version 1)
Quarter: 2013Q4

REPORT INFORMATION
  Report Type: Spontaneous
  Country: US (occurrence: US)
  Receive Date: 20131216
  Receipt Date: 20131216
  Transmission Date: 20140711
  Serious: Yes (Hospitalization)
  Sender: FDA-Public Use
  Company Number: US-GILEAD-2010-0028396

PATIENT
  Age: 65 Year
  Sex: Female

DRUGS (14)
  1. LETAIRIS [Suspect]
     Indication: PULMONARY ARTERIAL HYPERTENSION
     Dates: start: 20100201
  2. LETAIRIS [Suspect]
  3. REVATIO [Concomitant]
     Indication: PULMONARY ARTERIAL HYPERTENSION
  4. TYVASO [Concomitant]
  5. NORVASC [Concomitant]
     Indication: HYPERTENSION
  6. ALDACTONE [Concomitant]
  7. LASIX [Concomitant]
     Indication: OEDEMA
  8. CREON [Concomitant]
     Indication: PANCREATIC INSUFFICIENCY
  9. IMURAN [Concomitant]
     Indication: SYSTEMIC LUPUS ERYTHEMATOSUS
  10. EVOXAC [Concomitant]
     Indication: DRY MOUTH
  11. PLAQUENIL [Concomitant]
     Indication: SYSTEMIC LUPUS ERYTHEMATOSUS
  12. PRILOSEC [Concomitant]
     Indication: GASTROOESOPHAGEAL REFLUX DISEASE
  13. POTASSIUM CHLORIDE [Concomitant]
  14. PREDNISONE [Concomitant]

REACTIONS (2)
  - Oedema [Recovered/Resolved]
  - Dyspnoea [Recovered/Resolved]
